FAERS Safety Report 23660941 (Version 1)
Quarter: 2024Q1

REPORT INFORMATION
  Report Type: Spontaneous
  Country: US (occurrence: US)
  Receive Date: 20240322
  Receipt Date: 20240322
  Transmission Date: 20240410
  Serious: No
  Sender: FDA-Public Use
  Company Number: US-SANOFI-01982930

PATIENT
  Age: 76 Year
  Sex: Female

DRUGS (1)
  1. AVALIDE [Suspect]
     Active Substance: HYDROCHLOROTHIAZIDE\IRBESARTAN
     Indication: Blood pressure measurement
     Dosage: 1 DF, QD

REACTIONS (3)
  - Hypertension [Unknown]
  - Anxiety [Unknown]
  - Hypoacusis [Unknown]
